FAERS Safety Report 7708718-X (Version None)
Quarter: 2011Q3

REPORT INFORMATION
  Report Type: 
  Country: None (occurrence: None)
  Receive Date: 20110825
  Receipt Date: 20110825
  Transmission Date: 20111222
  Serious: No
  Sender: FDA-Public Use
  Company Number: None

PATIENT
  Age: 79 Year
  Sex: Female

DRUGS (1)
  1. LATANOPROST [Suspect]
     Dosage: 1 DROP
     Route: 047

REACTIONS (1)
  - EYE PRURITUS [None]
